FAERS Safety Report 16328074 (Version 1)
Quarter: 2019Q2

REPORT INFORMATION
  Report Type: Spontaneous
  Country: NL (occurrence: NL)
  Receive Date: 20190518
  Receipt Date: 20190518
  Transmission Date: 20190711
  Serious: Yes (Other)
  Sender: FDA-Public Use
  Company Number: NL-AUROBINDO-AUR-APL-2019-021722

PATIENT

DRUGS (7)
  1. DEXAMETHASONE. [Suspect]
     Active Substance: DEXAMETHASONE
     Indication: ANGIOEDEMA
     Dosage: 4 MILLIGRAM, 4 MG
     Route: 065
  2. CLEMASTINE [Suspect]
     Active Substance: CLEMASTINE
     Indication: ANGIOEDEMA
     Dosage: 2 MILLIGRAM, 2 MG
     Route: 042
  3. EPINEPHRINE HYDROCHLORIDE. [Suspect]
     Active Substance: EPINEPHRINE HYDROCHLORIDE
     Indication: ANGIOEDEMA
     Dosage: 0.5 MILLIGRAM, 0.5 MG
     Route: 065
  4. DANAZOL. [Suspect]
     Active Substance: DANAZOL
     Indication: ANGIOEDEMA
     Dosage: 200 MILLIGRAM, ONCE A DAY, 200 MG, QD
     Route: 065
  5. TRANEXAMIC ACID. [Concomitant]
     Active Substance: TRANEXAMIC ACID
     Indication: ANGIOEDEMA
     Dosage: 1000 MILLIGRAM, 3 TIMES A DAY, 1000 MG, TID
     Route: 065
  6. CETIRIZINE [Suspect]
     Active Substance: CETIRIZINE HYDROCHLORIDE
     Indication: ANGIOEDEMA
     Dosage: 20 MILLIGRAM, TWO TIMES A DAY, 20 MG, BID, MAINTENANCE
     Route: 065
  7. RANITIDINE. [Suspect]
     Active Substance: RANITIDINE
     Indication: ANGIOEDEMA
     Dosage: 300 MILLIGRAM, TWO TIMES A DAY, 300 MG, BID, MAINTENANCE THERAPY
     Route: 065

REACTIONS (2)
  - Myopathy [Recovered/Resolved]
  - Drug ineffective for unapproved indication [Unknown]
